FAERS Safety Report 17919959 (Version 2)
Quarter: 2020Q4

REPORT INFORMATION
  Report Type: Report from Study
  Country: RU (occurrence: RU)
  Receive Date: 20200620
  Receipt Date: 20201002
  Transmission Date: 20210113
  Serious: Yes (Death, Life-Threatening, Hospitalization, Other)
  Sender: FDA-Public Use
  Company Number: RU-TEVA-2020-RU-1788034

PATIENT
  Age: 57 Year
  Sex: Female

DRUGS (2)
  1. CISPLATIN-TEVA [Suspect]
     Active Substance: CISPLATIN
     Indication: CERVIX CARCINOMA STAGE III
     Dosage: A DOSAGE OF 66.8 ML 14-APR-2020, 21-APR-2020, 29-APR-2020
     Route: 065
  2. PARACETAMOL [Concomitant]
     Active Substance: ACETAMINOPHEN

REACTIONS (13)
  - Flushing [Fatal]
  - Tachycardia [Fatal]
  - Type IV hypersensitivity reaction [Fatal]
  - Pyrexia [Fatal]
  - Oxygen saturation decreased [Fatal]
  - General physical health deterioration [Fatal]
  - Wheezing [Fatal]
  - Chills [Fatal]
  - Tachypnoea [Fatal]
  - Disorientation [Fatal]
  - Asthenia [Fatal]
  - Dyspnoea [Fatal]
  - Blood pressure decreased [Fatal]

NARRATIVE: CASE EVENT DATE: 20200429
